FAERS Safety Report 9358661 (Version 1)
Quarter: 2013Q2

REPORT INFORMATION
  Report Type: Spontaneous
  Country: GB (occurrence: GB)
  Receive Date: 20130620
  Receipt Date: 20130620
  Transmission Date: 20140414
  Serious: Yes (Life-Threatening)
  Sender: FDA-Public Use
  Company Number: PHHY2013GB062171

PATIENT
  Sex: Male
  Weight: 82.7 kg

DRUGS (4)
  1. OXALIPLATIN [Suspect]
     Indication: COLON CANCER
     Dosage: 200 MG, UNK
     Route: 042
     Dates: start: 20121128, end: 20130531
  2. ONDANSETRON [Concomitant]
     Indication: COLON CANCER
     Route: 048
     Dates: start: 20121128
  3. DEXAMETHASONE [Concomitant]
     Indication: COLON CANCER
     Route: 048
     Dates: start: 20121128
  4. XELODA [Concomitant]
     Indication: COLON CANCER
     Route: 048
     Dates: start: 20121128

REACTIONS (3)
  - Loss of consciousness [Recovered/Resolved]
  - Palpitations [Recovered/Resolved]
  - Dysgeusia [Recovered/Resolved]
